FAERS Safety Report 14298010 (Version 1)
Quarter: 2017Q4

REPORT INFORMATION
  Report Type: Report from Study
  Country: ES (occurrence: ES)
  Receive Date: 20171218
  Receipt Date: 20171218
  Transmission Date: 20180321
  Serious: Yes (Other)
  Sender: FDA-Public Use
  Company Number: ES-BRISTOL-MYERS SQUIBB COMPANY-BMS-2017-114385

PATIENT
  Age: 49 Year
  Sex: Female
  Weight: 47 kg

DRUGS (1)
  1. NIVOLUMAB [Suspect]
     Active Substance: NIVOLUMAB
     Indication: LUNG ADENOCARCINOMA
     Dosage: 3 MG/KG, UNK
     Route: 065

REACTIONS (7)
  - Pruritus [Unknown]
  - Cachexia [Unknown]
  - Asthenia [Unknown]
  - Cough [Unknown]
  - Eczema [Unknown]
  - Dyspnoea [Unknown]
  - Axillary pain [Unknown]
